FAERS Safety Report 8543101-9 (Version None)
Quarter: 2012Q3

REPORT INFORMATION
  Report Type: 
  Country: None (occurrence: None)
  Receive Date: 20120727
  Receipt Date: 20110928
  Transmission Date: 20120928
  Serious: No
  Sender: FDA-Public Use
  Company Number: US-MYLANLABS-2011S1020410

PATIENT
  Age: 50 Year
  Sex: Female

DRUGS (4)
  1. VITAMIN TAB [Concomitant]
     Route: 048
  2. METROGEL [Concomitant]
     Indication: ROSACEA
     Route: 061
  3. ZYRTEC [Concomitant]
     Indication: HYPERSENSITIVITY
     Route: 048
  4. LEVOTHYROXINE SODIUM [Suspect]
     Indication: HYPOTHYROIDISM
     Route: 048
     Dates: start: 20080101

REACTIONS (5)
  - AGITATION [None]
  - TEMPERATURE INTOLERANCE [None]
  - DRUG EFFECT INCREASED [None]
  - FLUSHING [None]
  - ERYTHEMA [None]
